FAERS Safety Report 9508653 (Version 1)
Quarter: 2013Q1

REPORT INFORMATION
  Report Type: Spontaneous
  Country: US (occurrence: None)
  Receive Date: 20130305
  Receipt Date: 20130305
  Transmission Date: 20140127
  Serious: No
  Sender: FDA-Public Use
  Company Number: 163-21880-11043617

PATIENT
  Sex: Female

DRUGS (2)
  1. NEXIUM [Concomitant]
  2. REVLIMID [Suspect]

REACTIONS (1)
  - Diarrhoea [None]
